FAERS Safety Report 18467814 (Version 1)
Quarter: 2020Q4

REPORT INFORMATION
  Report Type: Spontaneous
  Country: US (occurrence: US)
  Receive Date: 20201105
  Receipt Date: 20201105
  Transmission Date: 20210114
  Serious: Yes (Other)
  Sender: FDA-Public Use
  Company Number: US-BAYER-2020-233047

PATIENT
  Age: 57 Year
  Sex: Male

DRUGS (1)
  1. SORAFENIB (RAF KINASE INHIBITOR) [Suspect]
     Active Substance: SORAFENIB
     Indication: METASTATIC RENAL CELL CARCINOMA

REACTIONS (5)
  - Metastases to pleura [None]
  - Skin hypertrophy [None]
  - Skin ulcer [None]
  - Skin toxicity [None]
  - Metastases to liver [None]
